FAERS Safety Report 25464425 (Version 1)
Quarter: 2025Q2

REPORT INFORMATION
  Report Type: Report from Study
  Country: CZ (occurrence: CZ)
  Receive Date: 20250621
  Receipt Date: 20250621
  Transmission Date: 20250717
  Serious: Yes (Other)
  Sender: AUROBINDO
  Company Number: CZ-TEVA-VS-3188985

PATIENT
  Sex: Female

DRUGS (5)
  1. PREGABALIN [Suspect]
     Active Substance: PREGABALIN
     Indication: Generalised anxiety disorder
     Route: 065
  2. PREGABALIN [Suspect]
     Active Substance: PREGABALIN
     Route: 065
  3. PREGABALIN [Suspect]
     Active Substance: PREGABALIN
     Route: 065
  4. PREGABALIN [Suspect]
     Active Substance: PREGABALIN
     Route: 065
  5. PREGABALIN [Suspect]
     Active Substance: PREGABALIN
     Route: 065

REACTIONS (8)
  - Therapy change [Unknown]
  - Anxiety [Unknown]
  - Conjunctival hyperaemia [Unknown]
  - Hyperhidrosis [Unknown]
  - Insomnia [Unknown]
  - Tremor [Unknown]
  - Tension [Unknown]
  - Withdrawal syndrome [Unknown]
